FAERS Safety Report 14392412 (Version 15)
Quarter: 2022Q4

REPORT INFORMATION
  Report Type: Spontaneous
  Country: PL (occurrence: PL)
  Receive Date: 20180116
  Receipt Date: 20221013
  Transmission Date: 20230113
  Serious: Yes (Other)
  Sender: FDA-Public Use
  Company Number: PHHY2018PL005683

PATIENT
  Age: 70 Year
  Sex: Female

DRUGS (16)
  1. CLOZAPINE [Interacting]
     Active Substance: CLOZAPINE
     Indication: Hallucinations, mixed
     Dosage: UNK
     Route: 065
  2. RIVASTIGMINE [Interacting]
     Active Substance: RIVASTIGMINE
     Indication: Product used for unknown indication
     Dosage: UNK
     Route: 065
  3. AMANTADINE [Suspect]
     Active Substance: AMANTADINE
     Indication: Parkinson^s disease
     Dosage: 100 MG, BID (200 MG, BID (AT MORNING AND AT NOON)
     Route: 065
  4. OXYBUTYNIN CHLORIDE [Suspect]
     Active Substance: OXYBUTYNIN CHLORIDE
     Indication: Urinary incontinence
     Dosage: 5 MG, TID
     Route: 065
  5. RASAGILINE TARTRATE [Suspect]
     Active Substance: RASAGILINE TARTRATE
     Indication: Parkinson^s disease
     Dosage: 1 MG, QD (IN MORNING)
     Route: 065
  6. AMITRIPTYLINE HYDROCHLORIDE [Suspect]
     Active Substance: AMITRIPTYLINE HYDROCHLORIDE
     Indication: Depression
     Dosage: 25 MG, QD
     Route: 065
  7. AMITRIPTYLINE HYDROCHLORIDE [Suspect]
     Active Substance: AMITRIPTYLINE HYDROCHLORIDE
     Indication: Sleep disorder
  8. HYDROXYZINE [Suspect]
     Active Substance: HYDROXYZINE HYDROCHLORIDE
     Indication: Anxiety disorder
     Dosage: 25 MG, QD (AS NECESSARY)
     Route: 065
  9. HYDROXYZINE [Suspect]
     Active Substance: HYDROXYZINE HYDROCHLORIDE
     Indication: Hallucination
  10. ROPINIROLE HYDROCHLORIDE [Suspect]
     Active Substance: ROPINIROLE HYDROCHLORIDE
     Indication: Parkinson^s disease
     Dosage: 8 MG, BID
     Route: 065
  11. ROPINIROLE HYDROCHLORIDE [Suspect]
     Active Substance: ROPINIROLE HYDROCHLORIDE
     Dosage: 6 MG, QD (DOSE REDUCED BY 2 MG)
     Route: 065
  12. BIPERIDEN [Suspect]
     Active Substance: BIPERIDEN
     Indication: Parkinson^s disease
     Dosage: 4 MG, QD
     Route: 065
  13. BIPERIDEN [Suspect]
     Active Substance: BIPERIDEN
     Dosage: 2 MG, BID
     Route: 065
  14. CARBIDOPA\LEVODOPA [Suspect]
     Active Substance: CARBIDOPA\LEVODOPA
     Indication: Parkinson^s disease
     Dosage: LEVODOPA 100/CARBIDOPA 25 MG, QID (AT 7.00, 11.00, 15.00, 19.00)
     Route: 065
  15. CARBIDOPA\LEVODOPA [Suspect]
     Active Substance: CARBIDOPA\LEVODOPA
     Dosage: LEVODOPA 200/CARBIDOPA 50 MG 4 TIMES A DAY AT 7.00 AM, 11.00 AM, 3.00 PM AND 7.00 PM
     Route: 065
  16. CARBIDOPA\LEVODOPA [Suspect]
     Active Substance: CARBIDOPA\LEVODOPA
     Dosage: LEVODOPA 200/CARBIDOPA 50 MG A DAY (AT 10.00 PM
     Route: 065

REACTIONS (19)
  - Parkinson^s disease [Unknown]
  - Hallucinations, mixed [Recovered/Resolved]
  - Pneumonia [Recovering/Resolving]
  - C-reactive protein increased [Unknown]
  - White blood cell count increased [Unknown]
  - Psychotic symptom [Unknown]
  - Drug interaction [Unknown]
  - Mental impairment [Unknown]
  - Cerebral atrophy [Unknown]
  - Neutrophil count increased [Unknown]
  - Anxiety [Unknown]
  - Labelled drug-drug interaction medication error [Unknown]
  - Hallucination, visual [Recovered/Resolved]
  - Musculoskeletal stiffness [Unknown]
  - Bradykinesia [Unknown]
  - Dementia [Unknown]
  - On and off phenomenon [Unknown]
  - Leukocytosis [Unknown]
  - Resting tremor [Unknown]
